FAERS Safety Report 9142374 (Version 1)
Quarter: 2013Q1

REPORT INFORMATION
  Report Type: Spontaneous
  Country: AU (occurrence: AU)
  Receive Date: 20130306
  Receipt Date: 20130306
  Transmission Date: 20140127
  Serious: Yes (Death, Hospitalization)
  Sender: FDA-Public Use
  Company Number: AU-RANBAXY-2013US-65121

PATIENT
  Age: 69 Year
  Sex: Male

DRUGS (1)
  1. MINOCYCLINE [Suspect]
     Indication: PRODUCT USED FOR UNKNOWN INDICATION
     Dosage: 100 MG, BID
     Route: 065

REACTIONS (9)
  - Thyroid disorder [Unknown]
  - Nasal disorder [Unknown]
  - Bone disorder [Unknown]
  - Chondropathy [Unknown]
  - Respiratory failure [Fatal]
  - Clubbing [Unknown]
  - Emphysema [Unknown]
  - Pneumonia [Unknown]
  - Bronchiectasis [Unknown]
